FAERS Safety Report 4493118-9 (Version None)
Quarter: 2004Q4

REPORT INFORMATION
  Report Type: 
  Country: None (occurrence: None)
  Receive Date: 20041104
  Receipt Date: 20041027
  Transmission Date: 20050328
  Serious: Yes (Hospitalization)
  Sender: FDA-Public Use
  Company Number: JP-GLAXOSMITHKLINE-B0350095A

PATIENT
  Age: 11 Year
  Sex: Male

DRUGS (7)
  1. SEREVENT [Suspect]
     Indication: ASTHMA
     Dosage: 25MCG TWICE PER DAY
     Route: 055
     Dates: start: 20041015, end: 20041017
  2. FLUTICASONE PROPIONATE [Concomitant]
     Route: 055
  3. ARDEPHYLLIN [Concomitant]
     Route: 048
  4. SAIBOKU-TO [Concomitant]
     Route: 048
  5. INTAL [Concomitant]
     Route: 065
  6. CLARITIN [Concomitant]
     Route: 048
  7. CLARITH [Concomitant]
     Route: 048

REACTIONS (6)
  - EYE DISCHARGE [None]
  - GENERALISED ERYTHEMA [None]
  - MORPHOEA [None]
  - OEDEMA [None]
  - PRURITUS [None]
  - SKIN DESQUAMATION [None]
